FAERS Safety Report 5856325-6 (Version None)
Quarter: 2008Q3

REPORT INFORMATION
  Report Type: 
  Country: None (occurrence: None)
  Receive Date: 20080821
  Receipt Date: 20080821
  Transmission Date: 20090109
  Serious: Yes (Death)
  Sender: FDA-Public Use
  Company Number: None

PATIENT
  Age: 79 Year
  Sex: Female
  Weight: 110.2241 kg

DRUGS (11)
  1. BYETTA [Suspect]
     Indication: DIABETES MELLITUS
     Dosage: 10 MCG TWICE DAILY SQ
     Route: 058
     Dates: start: 20050617, end: 20080511
  2. ALLOPURINOL [Concomitant]
  3. TOPROL-XL [Concomitant]
  4. ALTACE [Concomitant]
  5. FUROSEMIDE [Concomitant]
  6. GLYBURIDE [Concomitant]
  7. LANTUS [Concomitant]
  8. SIMVASTATIN [Concomitant]
  9. ISOSORBIDE [Concomitant]
  10. HYDROCODONE BITARTRATE [Concomitant]
  11. PLAVIX [Concomitant]

REACTIONS (5)
  - DYSURIA [None]
  - METASTASES TO ABDOMINAL CAVITY [None]
  - PANCREATIC CARCINOMA [None]
  - VOMITING [None]
  - WEIGHT DECREASED [None]
